FAERS Safety Report 7128632-0 (Version None)
Quarter: 2010Q4

REPORT INFORMATION
  Report Type: 
  Country: None (occurrence: None)
  Receive Date: 20101130
  Receipt Date: 20101126
  Transmission Date: 20110411
  Serious: Yes (Hospitalization)
  Sender: FDA-Public Use
  Company Number: PHHY2010CN80575

PATIENT
  Age: 53 Year
  Sex: Male

DRUGS (1)
  1. SANDOSTATIN [Suspect]
     Indication: GASTROINTESTINAL STROMAL TUMOUR
     Dosage: UNK, 4 TUBES DAILY
     Route: 058
     Dates: start: 20101014, end: 20101124

REACTIONS (3)
  - BODY TEMPERATURE DECREASED [None]
  - COMA [None]
  - HYPOTHYROIDISM [None]
